FAERS Safety Report 10222595 (Version 1)
Quarter: 2014Q2

REPORT INFORMATION
  Report Type: Spontaneous
  Country: IT (occurrence: IT)
  Receive Date: 20140606
  Receipt Date: 20140606
  Transmission Date: 20141212
  Serious: Yes (Hospitalization)
  Sender: FDA-Public Use
  Company Number: IT-WATSON-2013-25424

PATIENT
  Age: 81 Year
  Sex: Female

DRUGS (12)
  1. METFORMIN (UNKNOWN) [Suspect]
     Indication: TYPE 2 DIABETES MELLITUS
     Route: 048
     Dates: start: 20120101, end: 20130707
  2. ENALAPRIL (UNKNOWN) [Suspect]
     Indication: HYPERTENSION
     Route: 048
     Dates: start: 20120101, end: 20130707
  3. LASITONE 25 MG + 37 MG HARD CAPSULES (SANOFI-AVENTIS SPA) (C03EB01) [Suspect]
     Indication: HYPERTENSION
     Route: 048
     Dates: start: 20120101, end: 20130707
  4. GLIBENCLAMIDE [Suspect]
     Indication: TYPE 2 DIABETES MELLITUS
     Route: 048
     Dates: start: 20120101, end: 20130707
  5. CATAPRESAN TTS 1 2,5 MG TRANSDERMAL PATCHES [Concomitant]
     Indication: PRODUCT USED FOR UNKNOWN INDICATION
     Route: 062
  6. MODALINA 2 MG COATED TABLETS [Concomitant]
     Indication: PRODUCT USED FOR UNKNOWN INDICATION
     Route: 065
  7. AUGMENTIN [Concomitant]
     Indication: TOOTH ABSCESS
     Route: 065
  8. PLAVIX [Concomitant]
     Indication: THROMBOSIS PROPHYLAXIS
     Route: 065
  9. ATORVASTATIN CALCIUM TRIHYDRATE [Concomitant]
     Indication: DYSLIPIDAEMIA
     Route: 065
  10. ALLOPURINOL [Concomitant]
     Indication: HYPERURICAEMIA
     Route: 065
  11. BISOPROLOL HEMIFUMARATE [Concomitant]
     Indication: HYPERTENSION
     Route: 065
  12. ACETYLSALICYLIC ACID [Concomitant]
     Indication: THROMBOSIS PROPHYLAXIS
     Route: 065

REACTIONS (1)
  - Renal failure acute [Recovered/Resolved]
